FAERS Safety Report 8831632 (Version 2)
Quarter: 2013Q1

REPORT INFORMATION
  Report Type: Spontaneous
  Country: FR (occurrence: FR)
  Receive Date: 20121009
  Receipt Date: 20130325
  Transmission Date: 20140127
  Serious: Yes (Other)
  Sender: FDA-Public Use
  Company Number: FR-GLAXOSMITHKLINE-B0834673A

PATIENT
  Age: 30 Year
  Sex: Female

DRUGS (5)
  1. AZANTAC [Suspect]
     Indication: PRODUCT USED FOR UNKNOWN INDICATION
     Dosage: 300MG SINGLE DOSE
     Route: 048
     Dates: start: 20120902, end: 20120902
  2. XYLOCAINE [Suspect]
     Indication: PRODUCT USED FOR UNKNOWN INDICATION
     Route: 050
     Dates: start: 20120902, end: 20120902
  3. NAROPEINE [Suspect]
     Indication: PRODUCT USED FOR UNKNOWN INDICATION
     Route: 050
     Dates: start: 20120902, end: 20120902
  4. SYNTOCINON [Suspect]
     Indication: PRODUCT USED FOR UNKNOWN INDICATION
     Route: 042
     Dates: start: 20120902, end: 20120902
  5. SUFENTA [Concomitant]
     Dates: start: 20120902, end: 20120902

REACTIONS (8)
  - Pruritus [Recovered/Resolved]
  - Pharyngeal oedema [Recovered/Resolved]
  - Face oedema [Recovered/Resolved]
  - Macroglossia [Recovered/Resolved]
  - Painful respiration [Recovered/Resolved]
  - Speech disorder [Recovered/Resolved]
  - Oropharyngeal pain [Unknown]
  - Exposure during pregnancy [Unknown]
